FAERS Safety Report 7551475-0 (Version None)
Quarter: 2011Q2

REPORT INFORMATION
  Report Type: 
  Country: None (occurrence: None)
  Receive Date: 20110616
  Receipt Date: 20110603
  Transmission Date: 20111010
  Serious: Yes (Hospitalization)
  Sender: FDA-Public Use
  Company Number: PHHY2011FR48841

PATIENT
  Sex: Male

DRUGS (1)
  1. VOLTAREN [Suspect]
     Indication: BACK PAIN
     Dosage: UNK
     Route: 048
     Dates: start: 20050101

REACTIONS (5)
  - NEPHROTIC SYNDROME [None]
  - HYPERCHOLESTEROLAEMIA [None]
  - GLOMERULONEPHRITIS MEMBRANOUS [None]
  - GASTROINTESTINAL ULCER [None]
  - OEDEMA PERIPHERAL [None]
